FAERS Safety Report 17810803 (Version 1)
Quarter: 2020Q2

REPORT INFORMATION
  Report Type: Spontaneous
  Country: DK (occurrence: DK)
  Receive Date: 20200521
  Receipt Date: 20200521
  Transmission Date: 20200714
  Serious: Yes (Hospitalization)
  Sender: FDA-Public Use
  Company Number: DK-ACCORD-182430

PATIENT
  Age: 55 Year
  Sex: Female

DRUGS (10)
  1. LIDOCAINE ACCORD [Concomitant]
     Indication: PAIN
     Dosage: STRENGTH: 20 MG / ML. DOSE: 5 ML IF NEEDED,
     Route: 048
     Dates: start: 20190927
  2. AKYNZEO [Interacting]
     Active Substance: NETUPITANT\PALONOSETRON HYDROCHLORIDE
     Indication: PROPHYLAXIS OF NAUSEA AND VOMITING
     Dosage: STRENGTH: 300 MG / 0.5 MG. DOSE: 1 CAPSULE 1 HOUR BEFORE
     Route: 048
     Dates: start: 20190923
  3. MORFIN [Concomitant]
     Indication: PAIN
     Dosage: STRENGTH: 10 MG. DOSE: 5 MG IF NEEDED, NO MORE THAN 6 TIMES DAILY.
     Route: 048
     Dates: start: 20190927
  4. MYCOSTATIN [Concomitant]
     Active Substance: NYSTATIN
     Indication: ORAL CANDIDIASIS
     Dosage: STYRKE: 100.000 IE/ML.
     Route: 048
     Dates: start: 20190927
  5. BENDROZA [Concomitant]
     Active Substance: BENDROFLUMETHIAZIDE\POTASSIUM CHLORIDE
     Indication: DIURETIC THERAPY
     Dosage: STYRKE: 1.25+375 MG.
     Route: 048
     Dates: start: 20190729
  6. CHAMPIX [Concomitant]
     Active Substance: VARENICLINE TARTRATE
     Indication: EX-TOBACCO USER
     Dosage: STYRKE: 1 MG.
     Route: 048
     Dates: start: 20190717
  7. NIDDAZOL [Interacting]
     Active Substance: ITRACONAZOLE
     Indication: ORAL CANDIDIASIS
     Dosage: DOSE: 100 MG.
     Route: 048
     Dates: start: 20190916, end: 20190928
  8. VINORELBINE [Interacting]
     Active Substance: VINORELBINE TARTRATE
     Indication: NON-SMALL CELL LUNG CANCER
     Dosage: STRENGTH: 80 MG. DOSE: 160 MG
     Route: 048
     Dates: start: 20190923
  9. PREDNISOLONE. [Concomitant]
     Active Substance: PREDNISOLONE
     Indication: ADRENOCORTICAL STEROID THERAPY
     Dosage: STRENGTH: 50 MG. DOSE: 50 MG 1 HOUR BEFORE
     Route: 048
     Dates: start: 20190923
  10. CARBOPLATIN. [Suspect]
     Active Substance: CARBOPLATIN
     Indication: NON-SMALL CELL LUNG CANCER
     Dosage: STRENGTH: 10 MG/ML.
     Route: 042
     Dates: start: 20190923

REACTIONS (21)
  - Pyrexia [Not Recovered/Not Resolved]
  - Drug interaction [Unknown]
  - Liver disorder [Recovered/Resolved]
  - Neutropenia [Recovered/Resolved]
  - Stomatitis [Not Recovered/Not Resolved]
  - Dehydration [Not Recovered/Not Resolved]
  - Oral fungal infection [Unknown]
  - Skin exfoliation [Not Recovered/Not Resolved]
  - Hallucination, auditory [Unknown]
  - Mucosal disorder [Recovered/Resolved]
  - Amnesia [Unknown]
  - Gastrointestinal disorder [Recovered/Resolved]
  - Fatigue [Not Recovered/Not Resolved]
  - Sepsis [Recovered/Resolved]
  - Constipation [Not Recovered/Not Resolved]
  - Alopecia [Unknown]
  - Ileus [Recovered/Resolved]
  - Temperature intolerance [Not Recovered/Not Resolved]
  - Leukopenia [Not Recovered/Not Resolved]
  - Dizziness [Not Recovered/Not Resolved]
  - Immune system disorder [Unknown]

NARRATIVE: CASE EVENT DATE: 201909
